FAERS Safety Report 23690795 (Version 1)
Quarter: 2024Q2

REPORT INFORMATION
  Report Type: Report from Study
  Country: BR (occurrence: BR)
  Receive Date: 20240401
  Receipt Date: 20240401
  Transmission Date: 20240715
  Serious: Yes (Other)
  Sender: FDA-Public Use
  Company Number: BR-UCBSA-2024015621

PATIENT
  Sex: Male
  Weight: 98 kg

DRUGS (2)
  1. CERTOLIZUMAB PEGOL [Suspect]
     Active Substance: CERTOLIZUMAB PEGOL
     Indication: Rheumatoid arthritis
     Dosage: 400 MILLIGRAM, 2 SYRINGES EVERY 40 DAYS
     Route: 058
     Dates: start: 2023
  2. CERTOLIZUMAB PEGOL [Suspect]
     Active Substance: CERTOLIZUMAB PEGOL
     Indication: Psoriasis

REACTIONS (5)
  - Diabetes mellitus [Not Recovered/Not Resolved]
  - Joint lock [Not Recovered/Not Resolved]
  - Pain in extremity [Not Recovered/Not Resolved]
  - Wheelchair user [Unknown]
  - Off label use [Unknown]

NARRATIVE: CASE EVENT DATE: 20230101
